FAERS Safety Report 4734082-4 (Version None)
Quarter: 2005Q3

REPORT INFORMATION
  Report Type: 
  Country: None (occurrence: None)
  Receive Date: 20050804
  Receipt Date: 20050804
  Transmission Date: 20060218
  Serious: Yes (Death)
  Sender: FDA-Public Use
  Company Number: None

PATIENT
  Age: 32 Year
  Sex: Female

DRUGS (2)
  1. MIFEPRISTONE 200 MG DANCO [Suspect]
     Indication: ABORTION INDUCED
     Dosage: 200 MG X 1 ORAL
     Route: 048
     Dates: start: 20050521, end: 20050521
  2. MISOPROSTOL 600 MG [Suspect]
     Dosage: 600MG X 1 VAGINAL
     Route: 067
     Dates: start: 20050524, end: 20050524

REACTIONS (21)
  - ABDOMINAL PAIN [None]
  - ABORTION INDUCED [None]
  - CULTURE TISSUE SPECIMEN POSITIVE [None]
  - DEGENERATION OF UTERINE FIBROID [None]
  - DRUG EXPOSURE DURING PREGNANCY [None]
  - ENDOMETRIAL DISORDER [None]
  - HYPOTENSION [None]
  - HYSTERECTOMY [None]
  - INCORRECT DOSE ADMINISTERED [None]
  - INFLAMMATION [None]
  - NECROSIS [None]
  - PEPTOSTREPTOCOCCUS INFECTION [None]
  - POST PROCEDURAL HAEMORRHAGE [None]
  - PROCEDURAL COMPLICATION [None]
  - PULMONARY EMBOLISM [None]
  - PURULENCE [None]
  - SECRETION DISCHARGE [None]
  - TOXIC SHOCK SYNDROME [None]
  - UTERINE DISORDER [None]
  - UTERINE LEIOMYOMA [None]
  - WHITE BLOOD CELL COUNT INCREASED [None]
